FAERS Safety Report 24867547 (Version 2)
Quarter: 2025Q4

REPORT INFORMATION
  Report Type: Report from Study
  Country: CA (occurrence: CA)
  Receive Date: 20250121
  Receipt Date: 20251010
  Transmission Date: 20260117
  Serious: Yes (Other)
  Sender: SANDOZ
  Company Number: CA-SANDOZ-SDZ2024CA066870

PATIENT
  Sex: Male

DRUGS (1)
  1. HYRIMOZ [Suspect]
     Active Substance: ADALIMUMAB-ADAZ
     Indication: Crohn^s disease
     Dosage: 40 MG S/C EVERY 2 WEEKS
     Route: 058
     Dates: start: 20220503

REACTIONS (4)
  - Inguinal hernia [Recovering/Resolving]
  - Gastrointestinal disorder [Unknown]
  - General physical health deterioration [Not Recovered/Not Resolved]
  - Diarrhoea [Unknown]
